FAERS Safety Report 20531240 (Version 1)
Quarter: 2022Q1

REPORT INFORMATION
  Report Type: Spontaneous
  Country: US (occurrence: US)
  Receive Date: 20220301
  Receipt Date: 20220301
  Transmission Date: 20220424
  Serious: Yes (Other)
  Sender: FDA-Public Use
  Company Number: US-GLAXOSMITHKLINE-US2022GSK035392

PATIENT
  Sex: Female

DRUGS (8)
  1. RANITIDINE [Suspect]
     Active Substance: RANITIDINE
     Indication: Dyspepsia
     Dosage: 150 MG, QD
     Route: 065
     Dates: start: 201207, end: 201901
  2. RANITIDINE [Suspect]
     Active Substance: RANITIDINE
     Indication: Barrett^s oesophagus
     Dosage: 150 MG, BID
     Route: 065
     Dates: start: 201207, end: 201901
  3. RANITIDINE [Suspect]
     Active Substance: RANITIDINE
     Indication: Dyspepsia
     Dosage: 150 MG, QD
     Route: 065
     Dates: start: 201207, end: 201901
  4. RANITIDINE [Suspect]
     Active Substance: RANITIDINE
     Indication: Barrett^s oesophagus
     Dosage: 150 MG, BID
     Route: 065
     Dates: start: 201207, end: 201901
  5. ZANTAC [Suspect]
     Active Substance: RANITIDINE HYDROCHLORIDE
     Indication: Dyspepsia
     Dosage: UNK UNK, BID
     Route: 065
     Dates: start: 201201, end: 201207
  6. ZANTAC [Suspect]
     Active Substance: RANITIDINE HYDROCHLORIDE
     Indication: Barrett^s oesophagus
  7. RANITIDINE [Suspect]
     Active Substance: RANITIDINE
     Indication: Dyspepsia
     Dosage: UNK UNK, BID
     Route: 065
     Dates: start: 201201, end: 201207
  8. RANITIDINE [Suspect]
     Active Substance: RANITIDINE
     Indication: Barrett^s oesophagus

REACTIONS (2)
  - Bladder cancer [Unknown]
  - Pancreatic carcinoma [Unknown]
